FAERS Safety Report 9013801 (Version 1)
Quarter: 2012Q4

REPORT INFORMATION
  Report Type: Spontaneous
  Country: CN (occurrence: None)
  Receive Date: 20121231
  Receipt Date: 20121231
  Transmission Date: 20130627
  Serious: Yes (Other)
  Sender: FDA-Public Use
  Company Number: VAL_01220_2012

PATIENT
  Age: 64 Year
  Sex: Male
  Weight: 71 kg

DRUGS (1)
  1. LOTENSIN (LOTENSIN) (NOT SPECIFIED) [Suspect]
     Indication: PROTEIN URINE
     Route: 048
     Dates: start: 20090713, end: 20090721

REACTIONS (3)
  - Oedema peripheral [None]
  - Oedema peripheral [None]
  - Gait disturbance [None]
